FAERS Safety Report 26117848 (Version 2)
Quarter: 2025Q4

REPORT INFORMATION
  Report Type: Report from Study
  Country: US (occurrence: US)
  Receive Date: 20251203
  Receipt Date: 20251223
  Transmission Date: 20260118
  Serious: Yes (Hospitalization, Other)
  Sender: JOHNSON AND JOHNSON
  Company Number: US-JNJFOC-20250814423

PATIENT
  Age: 58 Year

DRUGS (2)
  1. RYBREVANT [Suspect]
     Active Substance: AMIVANTAMAB-VMJW
     Indication: Lung neoplasm malignant
  2. LAZCLUZE [Suspect]
     Active Substance: LAZERTINIB
     Indication: Product used for unknown indication
     Route: 048

REACTIONS (8)
  - Central nervous system lesion [Not Recovered/Not Resolved]
  - Pneumonia [Recovered/Resolved]
  - Full blood count abnormal [Recovered/Resolved]
  - Chest discomfort [Recovered/Resolved]
  - Femur fracture [Not Recovered/Not Resolved]
  - Bone lesion [Not Recovered/Not Resolved]
  - Hyperhidrosis [Unknown]
  - Lower limb fracture [Unknown]

NARRATIVE: CASE EVENT DATE: 20250801
